FAERS Safety Report 18435331 (Version 2)
Quarter: 2020Q4

REPORT INFORMATION
  Report Type: Report from Study
  Country: MY (occurrence: MY)
  Receive Date: 20201027
  Receipt Date: 20201106
  Transmission Date: 20210114
  Serious: Yes (Hospitalization)
  Sender: FDA-Public Use
  Company Number: MY-REGENERON PHARMACEUTICALS, INC.-2020-81174

PATIENT

DRUGS (11)
  1. ETORICOXIB. [Concomitant]
     Active Substance: ETORICOXIB
     Indication: ABDOMINAL DISTENSION
     Dosage: 120 MG, QD
     Route: 048
     Dates: start: 20200825
  2. CEMIPLIMAB [Suspect]
     Active Substance: CEMIPLIMAB
     Indication: LARGE CELL LUNG CANCER STAGE IV
     Dosage: 350 MG, Q3W
     Route: 042
     Dates: start: 20200805, end: 20200917
  3. ITOPRIDE [Concomitant]
     Active Substance: ITOPRIDE
     Indication: ABDOMINAL DISTENSION
     Dosage: 50 MG, TID
     Route: 048
     Dates: start: 20200825
  4. CARBOPLATIN. [Suspect]
     Active Substance: CARBOPLATIN
     Indication: LARGE CELL LUNG CANCER STAGE IV
     Dosage: AUC OF 5 OR 6 MG/ML/MIN, Q3W
     Route: 042
     Dates: start: 20200805, end: 20200917
  5. DOMPERIDONE [Concomitant]
     Active Substance: DOMPERIDONE
     Indication: ABDOMINAL DISTENSION
     Dosage: 10 MG, TID
     Route: 048
     Dates: start: 20200825
  6. IBERET FOLIC [Concomitant]
     Indication: ANAEMIA
     Dosage: 1 DF, QD
     Route: 048
     Dates: start: 20200825
  7. SODIUM CHLORIDE. [Concomitant]
     Active Substance: SODIUM CHLORIDE
     Dosage: 125 ML, QD
     Route: 042
     Dates: start: 20200915, end: 20200915
  8. PEMETREXED. [Suspect]
     Active Substance: PEMETREXED
     Indication: LARGE CELL LUNG CANCER STAGE IV
     Dosage: 500 MG/M2, Q3W
     Route: 042
     Dates: start: 20200805, end: 20200917
  9. LORAZEPAM. [Concomitant]
     Active Substance: LORAZEPAM
     Indication: INSOMNIA
     Dosage: 1 MG, QD
     Route: 048
     Dates: start: 20200915
  10. PARACETAMOL [Concomitant]
     Active Substance: ACETAMINOPHEN
     Indication: ARTHRALGIA
     Dosage: 1 G, AS NECESSARY
     Route: 048
     Dates: start: 20200825
  11. SODIUM CHLORIDE. [Concomitant]
     Active Substance: SODIUM CHLORIDE
     Indication: HYPONATRAEMIA
     Dosage: 1000 MG, TID
     Route: 048
     Dates: start: 20200915, end: 20200929

REACTIONS (1)
  - Blood creatinine increased [Not Recovered/Not Resolved]

NARRATIVE: CASE EVENT DATE: 20201006
